FAERS Safety Report 17048529 (Version 1)
Quarter: 2019Q4

REPORT INFORMATION
  Report Type: Report from Study
  Country: ES (occurrence: ES)
  Receive Date: 20191119
  Receipt Date: 20191119
  Transmission Date: 20200122
  Serious: Yes (Death)
  Sender: FDA-Public Use
  Company Number: ES-PFIZER INC-2019494489

PATIENT

DRUGS (2)
  1. GEMCITABINE HYDROCHLORIDE. [Suspect]
     Active Substance: GEMCITABINE HYDROCHLORIDE
     Indication: PANCREATIC CARCINOMA METASTATIC
     Dosage: 1000 MG/M2, CYCLIC (IV INFUSION ON DAYS 1, 8 AND 15 OF A 28-DAY CYCLE)
     Route: 042
  2. ERLOTINIB [Suspect]
     Active Substance: ERLOTINIB
     Indication: PANCREATIC CARCINOMA METASTATIC
     Dosage: 100 MG, CYCLIC (ERLOTINIB 100 MG/DAY CONTINUOUS ORAL ADMINISTRATION)
     Route: 048

REACTIONS (1)
  - Sepsis [Fatal]
